FAERS Safety Report 23369809 (Version 1)
Quarter: 2024Q1

REPORT INFORMATION
  Report Type: Spontaneous
  Country: US (occurrence: None)
  Receive Date: 20240105
  Receipt Date: 20240105
  Transmission Date: 20240409
  Serious: No
  Sender: FDA-Public Use
  Company Number: 2024A003217

PATIENT

DRUGS (1)
  1. BREZTRI [Suspect]
     Active Substance: BUDESONIDE\FORMOTEROL\GLYCOPYRROLATE
     Route: 055

REACTIONS (7)
  - Laryngitis [Unknown]
  - Nocturia [Unknown]
  - Dyspnoea [Unknown]
  - Dysphonia [Unknown]
  - Vocal cord disorder [Unknown]
  - Insomnia [Unknown]
  - Discomfort [Unknown]
